FAERS Safety Report 5448995-1 (Version None)
Quarter: 2007Q3

REPORT INFORMATION
  Report Type: 
  Country: None (occurrence: None)
  Receive Date: 20070911
  Receipt Date: 20070903
  Transmission Date: 20080115
  Serious: Yes (Other)
  Sender: FDA-Public Use
  Company Number: AU-ASTRAZENECA-2007AP05508

PATIENT
  Sex: Male

DRUGS (2)
  1. PULMICORT [Suspect]
     Route: 055
  2. ASMOL [Concomitant]

REACTIONS (2)
  - PHARYNGEAL OEDEMA [None]
  - SWOLLEN TONGUE [None]
